FAERS Safety Report 6172248-X (Version None)
Quarter: 2009Q2

REPORT INFORMATION
  Report Type: 
  Country: None (occurrence: None)
  Receive Date: 20090427
  Receipt Date: 20090427
  Transmission Date: 20091009
  Serious: Yes (Hospitalization)
  Sender: FDA-Public Use
  Company Number: None

PATIENT
  Sex: Female

DRUGS (4)
  1. DIGOXIN [Suspect]
     Dosage: ONE AND ONE-HALF TABLET EVERY DAY PO
     Route: 048
     Dates: start: 20071203, end: 20090420
  2. DIGOXIN [Suspect]
  3. DIGOXIN [Suspect]
  4. DIGOXIN [Suspect]

REACTIONS (6)
  - EYELID PTOSIS [None]
  - FACE INJURY [None]
  - FACIAL BONES FRACTURE [None]
  - FALL [None]
  - NERVE INJURY [None]
  - SYNCOPE [None]
